FAERS Safety Report 7402868-3 (Version None)
Quarter: 2011Q2

REPORT INFORMATION
  Report Type: 
  Country: None (occurrence: None)
  Receive Date: 20110408
  Receipt Date: 20110330
  Transmission Date: 20111010
  Serious: Yes (Hospitalization)
  Sender: FDA-Public Use
  Company Number: JP-ASTRAZENECA-2011SE18950

PATIENT
  Age: 82 Year
  Sex: Male
  Weight: 49 kg

DRUGS (30)
  1. SULTANOL [Concomitant]
     Indication: CHRONIC OBSTRUCTIVE PULMONARY DISEASE
     Dosage: DOSE UNKNOWN, AS REQUIRED
     Route: 055
     Dates: start: 20100520
  2. LAC-B [Concomitant]
     Indication: GASTRITIS
     Route: 048
     Dates: start: 20090401
  3. COMPOUND EPITHANATE-G [Concomitant]
     Indication: GASTRITIS
     Route: 048
     Dates: start: 20100817
  4. PL [Concomitant]
     Dosage: NUMBER OF SEPARATE DOSAGES UNKNOWN
     Route: 048
     Dates: start: 20100615, end: 20100619
  5. PL [Concomitant]
     Route: 048
     Dates: start: 20110327
  6. GESCHWUR [Concomitant]
     Indication: GASTRITIS
     Route: 048
     Dates: end: 20100816
  7. PL [Concomitant]
     Indication: NASOPHARYNGITIS
     Dosage: NUMBER OF SEPARATE DOSAGES UNKNOWN
     Route: 048
     Dates: start: 20100524, end: 20100604
  8. PL [Concomitant]
     Indication: PYREXIA
     Dosage: NUMBER OF SEPARATE DOSAGES UNKNOWN
     Route: 048
     Dates: start: 20100524, end: 20100604
  9. PL [Concomitant]
     Dosage: NUMBER OF SEPARATE DOSAGES UNKNOWN
     Route: 048
     Dates: start: 20100721, end: 20100724
  10. PL [Concomitant]
     Dosage: NUMBER OF SEPARATE DOSAGES UNKNOWN
     Route: 048
     Dates: start: 20100721, end: 20100724
  11. SYMBICORT [Suspect]
     Indication: CHRONIC OBSTRUCTIVE PULMONARY DISEASE
     Dosage: 160/4.5 UG TWO INHALATION TWO TIMES A DAY
     Route: 055
     Dates: start: 20100603, end: 20110330
  12. SPIRIVA [Concomitant]
     Indication: CHRONIC OBSTRUCTIVE PULMONARY DISEASE
     Route: 055
     Dates: start: 20050111
  13. NEO UMOR [Concomitant]
     Indication: GASTRITIS
     Route: 048
     Dates: start: 20100817
  14. CRAVIT [Concomitant]
     Dosage: NUMBER OF SEPARATE DOSAGES UNKNOWN
     Route: 048
     Dates: start: 20100721, end: 20100724
  15. EURAX H [Concomitant]
     Indication: ECZEMA
     Dosage: DOSE UNKNOWN
     Route: 062
  16. LENDORMIN D [Concomitant]
     Indication: INSOMNIA
     Route: 048
     Dates: start: 20091027
  17. PL [Concomitant]
     Route: 048
     Dates: start: 20110327
  18. CRAVIT [Concomitant]
     Route: 048
     Dates: start: 20110327
  19. MUCODYNE [Concomitant]
     Route: 048
     Dates: start: 20100701
  20. DIASTASE [Concomitant]
     Indication: GASTRITIS
     Route: 048
     Dates: start: 20090401
  21. CRAVIT [Concomitant]
     Indication: PYREXIA
     Dosage: NUMBER OF SEPARATE DOSAGES UNKNOWN
     Route: 048
     Dates: start: 20100531, end: 20100604
  22. CRAVIT [Concomitant]
     Dosage: NUMBER OF SEPARATE DOSAGES UNKNOWN
     Route: 048
     Dates: start: 20100615, end: 20100619
  23. JUSO [Concomitant]
     Indication: GASTRITIS
     Route: 048
     Dates: start: 20090414
  24. PL [Concomitant]
     Dosage: NUMBER OF SEPARATE DOSAGES UNKNOWN
     Route: 048
     Dates: start: 20100615, end: 20100619
  25. CRAVIT [Concomitant]
     Dosage: NUMBER OF SEPARATE DOSAGES UNKNOWN
     Route: 048
     Dates: start: 20100615, end: 20100619
  26. CRAVIT [Concomitant]
     Dosage: NUMBER OF SEPARATE DOSAGES UNKNOWN
     Route: 048
     Dates: start: 20100721, end: 20100724
  27. CALONAL [Concomitant]
     Indication: NASOPHARYNGITIS
     Dosage: NUMBER OF SEPARATE DOSAGES UNKNOWN
     Route: 048
     Dates: start: 20100531, end: 20100604
  28. MUCODYNE [Concomitant]
     Indication: CHRONIC OBSTRUCTIVE PULMONARY DISEASE
     Dosage: NUMBER OF SEPARATE DOSAGES UNKNOWN
     Route: 048
     Dates: end: 20100630
  29. CRAVIT [Concomitant]
     Indication: NASOPHARYNGITIS
     Dosage: NUMBER OF SEPARATE DOSAGES UNKNOWN
     Route: 048
     Dates: start: 20100531, end: 20100604
  30. CRAVIT [Concomitant]
     Route: 048
     Dates: start: 20110327

REACTIONS (1)
  - PNEUMONIA [None]
